FAERS Safety Report 7235843-2 (Version None)
Quarter: 2011Q1

REPORT INFORMATION
  Report Type: 
  Country: None (occurrence: None)
  Receive Date: 20110120
  Receipt Date: 20110110
  Transmission Date: 20110831
  Serious: Yes (Other)
  Sender: FDA-Public Use
  Company Number: US-ROCHE-751205

PATIENT
  Age: 71 Year
  Sex: Male

DRUGS (3)
  1. SEROQUEL [Concomitant]
  2. RITALIN [Concomitant]
  3. VALIUM [Suspect]
     Indication: AGITATED DEPRESSION
     Dosage: AT NIGHT; OTHER INDICATION: ANXIETY
     Route: 048

REACTIONS (4)
  - BRONCHITIS [None]
  - RENAL IMPAIRMENT [None]
  - LIP DRY [None]
  - SOMNOLENCE [None]
